FAERS Safety Report 7200730-2 (Version None)
Quarter: 2010Q4

REPORT INFORMATION
  Report Type: 
  Country: None (occurrence: None)
  Receive Date: 20101228
  Receipt Date: 20101215
  Transmission Date: 20110411
  Serious: Yes (Hospitalization)
  Sender: FDA-Public Use
  Company Number: JP-ROCHE-749473

PATIENT
  Age: 60 Year
  Sex: Male

DRUGS (2)
  1. PEGASYS [Suspect]
     Indication: HEPATITIS C
     Dosage: NOTE: DOSAGE IS UNCERTAIN
     Route: 058
     Dates: start: 20090201, end: 20090701
  2. PEGASYS [Suspect]
     Route: 058
     Dates: end: 20100224

REACTIONS (1)
  - AUTOIMMUNE HEPATITIS [None]
